FAERS Safety Report 18264896 (Version 5)
Quarter: 2022Q3

REPORT INFORMATION
  Report Type: Spontaneous
  Country: JP (occurrence: JP)
  Receive Date: 20200914
  Receipt Date: 20220920
  Transmission Date: 20221027
  Serious: Yes (Death, Life-Threatening, Hospitalization, Other)
  Sender: FDA-Public Use
  Company Number: JP-PFIZER INC-2020351850

PATIENT
  Age: 12 Year
  Sex: Male
  Weight: 26.6 kg

DRUGS (2)
  1. BESPONSA [Suspect]
     Active Substance: INOTUZUMAB OZOGAMICIN
     Indication: Acute lymphocytic leukaemia recurrent
     Dosage: 0.8 MG/M2,DAILY, CYCLIC
     Route: 041
     Dates: start: 20200825, end: 20200825
  2. BESPONSA [Suspect]
     Active Substance: INOTUZUMAB OZOGAMICIN
     Dosage: 0.5 MG/M2, DAILY, CYCLIC
     Route: 041
     Dates: start: 20200901, end: 20200901

REACTIONS (7)
  - Febrile neutropenia [Fatal]
  - Platelet count decreased [Recovering/Resolving]
  - Endothelial dysfunction [Unknown]
  - White blood cell count decreased [Unknown]
  - Aspartate aminotransferase increased [Unknown]
  - Neoplasm progression [Unknown]
  - Off label use [Unknown]

NARRATIVE: CASE EVENT DATE: 20200825
